APPROVED DRUG PRODUCT: SODIUM CHLORIDE 0.9% IN PLASTIC CONTAINER
Active Ingredient: SODIUM CHLORIDE
Strength: 225MG/25ML (9MG/ML)
Dosage Form/Route: SOLUTION;INJECTION
Application: N016677 | Product #004
Applicant: BAXTER HEALTHCARE CORP
Approved: Oct 30, 1985 | RLD: Yes | RS: Yes | Type: RX